FAERS Safety Report 12840322 (Version 2)
Quarter: 2016Q4

REPORT INFORMATION
  Report Type: Spontaneous
  Country: JP (occurrence: JP)
  Receive Date: 20161012
  Receipt Date: 20161128
  Transmission Date: 20170207
  Serious: Yes (Hospitalization, Other)
  Sender: FDA-Public Use
  Company Number: JP-PFIZER INC-2016455078

PATIENT
  Age: 63 Year
  Sex: Female
  Weight: 48 kg

DRUGS (6)
  1. REVOLADE [Concomitant]
     Active Substance: ELTROMBOPAG
     Indication: IMMUNE THROMBOCYTOPENIC PURPURA
     Dosage: 12.5 MG, 1X/DAY
     Route: 048
     Dates: start: 20160524
  2. CELECOX [Suspect]
     Active Substance: CELECOXIB
     Indication: BACK PAIN
     Dosage: 100 MG, 2X/DAY
     Route: 048
     Dates: start: 20160513, end: 20160523
  3. CELECOX [Suspect]
     Active Substance: CELECOXIB
     Dosage: 100 MG, 1X/DAY
     Route: 048
     Dates: start: 20160624, end: 20160706
  4. PREDONINE [Concomitant]
     Active Substance: PREDNISOLONE\PREDNISOLONE ACETATE\PREDNISOLONE SODIUM SUCCINATE
     Indication: IMMUNE THROMBOCYTOPENIC PURPURA
     Dosage: 27.5 MG, 2X/DAY
     Route: 048
     Dates: start: 20150327
  5. CEPHARANTHINE [Concomitant]
     Active Substance: CEPHARANTHINE
     Indication: IMMUNE THROMBOCYTOPENIC PURPURA
     Dosage: 2 G, 3X/DAY
     Route: 048
     Dates: start: 20150331
  6. CELECOX [Suspect]
     Active Substance: CELECOXIB
     Dosage: 100 MG, 2X/DAY
     Route: 048
     Dates: start: 20160901, end: 20160907

REACTIONS (2)
  - Platelet count decreased [Recovered/Resolved]
  - Intentional product misuse [Unknown]

NARRATIVE: CASE EVENT DATE: 20160513
